FAERS Safety Report 18955670 (Version 1)
Quarter: 2021Q1

REPORT INFORMATION
  Report Type: Spontaneous
  Country: CN (occurrence: CN)
  Receive Date: 20210301
  Receipt Date: 20210301
  Transmission Date: 20210420
  Serious: Yes (Hospitalization, Other)
  Sender: FDA-Public Use
  Company Number: CN-PFIZER INC-2021184505

PATIENT
  Age: 2 Year
  Sex: Female
  Weight: 10.5 kg

DRUGS (3)
  1. PREDNISONE ACETATE [Suspect]
     Active Substance: PREDNISONE ACETATE
     Indication: NEPHROTIC SYNDROME
     Dosage: 10 MG, 2X/DAY
     Route: 048
     Dates: start: 20200714, end: 20210210
  2. PREDNISONE ACETATE [Suspect]
     Active Substance: PREDNISONE ACETATE
     Dosage: DOSE INCREASED AND DECREASED SEVERAL TIMES/REDUCED TO MINIMUM OF 10MG/2.5MG,  ALTERNATE DAY
     Route: 048
  3. METHYLPREDNISOLONE SODIUM SUCCINATE. [Suspect]
     Active Substance: METHYLPREDNISOLONE SODIUM SUCCINATE
     Indication: NEPHROTIC SYNDROME
     Dosage: 8 MG, 2X/DAY
     Route: 041
     Dates: start: 20200707, end: 20200713

REACTIONS (3)
  - Growth retardation [Recovering/Resolving]
  - Proteinuria [Unknown]
  - Oedema [Unknown]

NARRATIVE: CASE EVENT DATE: 20210203
